FAERS Safety Report 15934883 (Version 2)
Quarter: 2019Q1

REPORT INFORMATION
  Report Type: Report from Study
  Country: BR (occurrence: BR)
  Receive Date: 20190207
  Receipt Date: 20190220
  Transmission Date: 20190417
  Serious: Yes (Hospitalization)
  Sender: FDA-Public Use
  Company Number: PHHY2017BR197575

PATIENT
  Age: 60 Year
  Sex: Male
  Weight: 61 kg

DRUGS (2)
  1. ACLASTA [Suspect]
     Active Substance: ZOLEDRONIC ACID
     Indication: OSTEOPOROSIS
     Dosage: 5 MG/DL (100 ML), Q12MO
     Route: 042
     Dates: start: 20171227, end: 20171227
  2. ACLASTA [Suspect]
     Active Substance: ZOLEDRONIC ACID
     Dosage: UNK
     Route: 042
     Dates: start: 201812

REACTIONS (9)
  - Malaise [Not Recovered/Not Resolved]
  - Influenza [Recovered/Resolved]
  - Pain [Recovered/Resolved]
  - Arthralgia [Recovered/Resolved]
  - Joint stiffness [Unknown]
  - Flank pain [Recovered/Resolved]
  - Peripheral swelling [Unknown]
  - Testicular pain [Recovered/Resolved]
  - Pyrexia [Not Recovered/Not Resolved]

NARRATIVE: CASE EVENT DATE: 20180102
